FAERS Safety Report 5528881-9 (Version None)
Quarter: 2007Q4

REPORT INFORMATION
  Report Type: 
  Country: None (occurrence: None)
  Receive Date: 20071126
  Receipt Date: 20071026
  Transmission Date: 20080405
  Serious: Yes (Other)
  Sender: FDA-Public Use
  Company Number: FRPFM-L-20070015

PATIENT
  Age: 33 Year
  Sex: Female

DRUGS (3)
  1. NAVELBINE [Suspect]
     Indication: BREAST CANCER
     Dosage: 40 MG/M2  IV
     Route: 042
  2. NAVELBINE [Suspect]
     Indication: BREAST CANCER
     Dosage: 540 MG/M2  IV
     Route: 042
  3. FLUOROURACIL [Concomitant]

REACTIONS (1)
  - DRUG EXPOSURE DURING PREGNANCY [None]
